FAERS Safety Report 4474168-5 (Version None)
Quarter: 2004Q4

REPORT INFORMATION
  Report Type: 
  Country: None (occurrence: None)
  Receive Date: 20041014
  Receipt Date: 20041005
  Transmission Date: 20050328
  Serious: Yes (Other)
  Sender: FDA-Public Use
  Company Number: GB-BRISTOL-MYERS SQUIBB COMPANY-12721577

PATIENT
  Age: 33 Year
  Sex: Male
  Weight: 76 kg

DRUGS (6)
  1. BUSPIRONE HCL TABS [Suspect]
     Indication: ANXIETY
     Route: 048
     Dates: start: 20040827, end: 20040901
  2. BACLOFEN [Concomitant]
     Indication: MUSCLE SPASTICITY
  3. FOLIC ACID [Concomitant]
     Indication: FOLATE DEFICIENCY
  4. CARBAMAZEPINE [Concomitant]
     Indication: PAIN
  5. DIHYDROCODEINE [Concomitant]
     Indication: PAIN
  6. MIRTAZAPINE [Concomitant]
     Indication: DEPRESSION
     Dosage: NOCTE

REACTIONS (2)
  - BLOOD LACTATE DEHYDROGENASE INCREASED [None]
  - OEDEMA PERIPHERAL [None]
